FAERS Safety Report 13252643 (Version 1)
Quarter: 2017Q1

REPORT INFORMATION
  Report Type: Spontaneous
  Country: ZA (occurrence: ZA)
  Receive Date: 20170220
  Receipt Date: 20170220
  Transmission Date: 20170428
  Serious: Yes (Other)
  Sender: FDA-Public Use
  Company Number: ZA-BAYER-2017-031738

PATIENT
  Age: 27 Year
  Sex: Female

DRUGS (1)
  1. MOXIBAY [Suspect]
     Active Substance: MOXIFLOXACIN HYDROCHLORIDE
     Dosage: UNK
     Dates: start: 20170208

REACTIONS (2)
  - Oxygen supplementation [None]
  - Infusion [None]

NARRATIVE: CASE EVENT DATE: 20170209
